FAERS Safety Report 18713158 (Version 1)
Quarter: 2021Q1

REPORT INFORMATION
  Report Type: Not Available
  Country: None (occurrence: None)
  Receive Date: 20210107
  Receipt Date: 20210107
  Transmission Date: 20210419
  Serious: Yes (Death, Life-Threatening, Other)
  Sender: FDA-Public Use
  Company Number: GB-AKORN-158966

PATIENT
  Sex: Male

DRUGS (1)
  1. FENTANYL CITRATE INJECTION, USP CII [Suspect]
     Active Substance: FENTANYL CITRATE

REACTIONS (2)
  - Product use issue [Fatal]
  - Asphyxia [Fatal]
